FAERS Safety Report 6719963-4 (Version None)
Quarter: 2010Q2

REPORT INFORMATION
  Report Type: 
  Country: None (occurrence: None)
  Receive Date: 20100511
  Receipt Date: 20100511
  Transmission Date: 20101027
  Serious: Yes (Hospitalization, Other)
  Sender: FDA-Public Use
  Company Number: None

PATIENT
  Age: 19 Month
  Sex: Male
  Weight: 9.5255 kg

DRUGS (2)
  1. CHILDREN'S MOTRIN [Suspect]
     Indication: OTITIS MEDIA
     Dosage: 1 TSP 6 HRS TOOK FOR 5 DAYS
     Dates: start: 20100419, end: 20100424
  2. CHILDREN'S MOTRIN [Suspect]
     Indication: PYREXIA
     Dosage: 1 TSP 6 HRS TOOK FOR 5 DAYS
     Dates: start: 20100419, end: 20100424

REACTIONS (4)
  - DEHYDRATION [None]
  - DIARRHOEA [None]
  - VOMITING [None]
  - WEIGHT DECREASED [None]
